FAERS Safety Report 15144015 (Version 2)
Quarter: 2018Q3

REPORT INFORMATION
  Report Type: Report from Study
  Country: GB (occurrence: GB)
  Receive Date: 20180713
  Receipt Date: 20180723
  Transmission Date: 20181010
  Serious: Yes (Other)
  Sender: FDA-Public Use
  Company Number: GB-SHIRE-GB201825162

PATIENT

DRUGS (3)
  1. AMETOP [Concomitant]
     Indication: PRODUCT USED FOR UNKNOWN INDICATION
     Dosage: WEEKLY
     Route: 061
  2. ELAPRASE [Suspect]
     Active Substance: IDURSULFASE
     Indication: MUCOPOLYSACCHARIDOSIS II
     Dosage: 24 MG, 1X/WEEK
     Route: 042
     Dates: start: 20120419
  3. ETHYL CHLORIDE [Concomitant]
     Active Substance: ETHYL CHLORIDE
     Indication: PRODUCT USED FOR UNKNOWN INDICATION
     Dosage: WEEKLY
     Route: 061

REACTIONS (1)
  - Fungal skin infection [Recovered/Resolved]
